FAERS Safety Report 17091349 (Version 1)
Quarter: 2019Q4

REPORT INFORMATION
  Report Type: Spontaneous
  Country: US (occurrence: US)
  Receive Date: 20191031
  Receipt Date: 20191031
  Transmission Date: 20200122
  Serious: No
  Sender: FDA-Public Use
  Company Number: None

PATIENT
  Age: 67 Year
  Sex: Female
  Weight: 72.57 kg

DRUGS (8)
  1. MAGNESIUM [Concomitant]
     Active Substance: MAGNESIUM
  2. BABY ASPRIN [Concomitant]
     Active Substance: ASPIRIN
  3. VIT A + D [Concomitant]
  4. FISH OIL [Concomitant]
     Active Substance: FISH OIL
  5. DESLORATADINE. [Concomitant]
     Active Substance: DESLORATADINE
  6. VITAMIN B12 [Concomitant]
     Active Substance: CYANOCOBALAMIN
  7. CARVEDILOL. [Suspect]
     Active Substance: CARVEDILOL
     Indication: CARDIAC FAILURE
     Dosage: ?          QUANTITY:1 DF DOSAGE FORM;?
     Route: 048
     Dates: start: 20190827, end: 20190830
  8. AMITRIPTYLINE [Concomitant]
     Active Substance: AMITRIPTYLINE

REACTIONS (5)
  - Insomnia [None]
  - Dizziness [None]
  - Dyspnoea [None]
  - Gait inability [None]
  - Weight increased [None]

NARRATIVE: CASE EVENT DATE: 20190829
